FAERS Safety Report 20298533 (Version 4)
Quarter: 2022Q1

REPORT INFORMATION
  Report Type: Spontaneous
  Country: CH (occurrence: CH)
  Receive Date: 20220105
  Receipt Date: 20220131
  Transmission Date: 20220423
  Serious: Yes (Hospitalization, Other)
  Sender: FDA-Public Use
  Company Number: CH-BAYER-2022A000830

PATIENT

DRUGS (4)
  1. EYLEA [Suspect]
     Active Substance: AFLIBERCEPT
     Indication: Retinal vein occlusion
     Dosage: 50 ?L, ONCE, TOTAL NUMBER OF TWO EYLEA INJECTIONS
     Route: 031
     Dates: start: 20210706, end: 20210706
  2. EYLEA [Suspect]
     Active Substance: AFLIBERCEPT
     Dosage: 50 ?L, ONCE
     Route: 031
     Dates: start: 20210805, end: 20210805
  3. COMIRNATY [Interacting]
     Active Substance: TOZINAMERAN
     Indication: COVID-19 prophylaxis
     Dosage: FIRST INJECTION
     Dates: start: 202105, end: 202105
  4. COMIRNATY [Interacting]
     Active Substance: TOZINAMERAN
     Dosage: SECOND INJECTION
     Dates: start: 202107, end: 202107

REACTIONS (3)
  - Retinal vascular occlusion [Not Recovered/Not Resolved]
  - Blindness unilateral [Not Recovered/Not Resolved]
  - Drug interaction [Unknown]

NARRATIVE: CASE EVENT DATE: 20210806
